FAERS Safety Report 4588603-5 (Version None)
Quarter: 2005Q1

REPORT INFORMATION
  Report Type: 
  Country: None (occurrence: None)
  Receive Date: 20050222
  Receipt Date: 20050211
  Transmission Date: 20050727
  Serious: Yes (Hospitalization)
  Sender: FDA-Public Use
  Company Number: US-ROCHE-395217

PATIENT
  Age: 57 Year
  Sex: Female
  Weight: 61.2 kg

DRUGS (10)
  1. PEG-INTERFERON ALFA 2A (RO 25-8310) [Suspect]
     Dosage: DOSAGE FORM REPORTED AS VIAL.
     Route: 058
     Dates: start: 20040621, end: 20050209
  2. RIBAVIRIN [Suspect]
     Route: 048
     Dates: start: 20040621, end: 20050209
  3. OXYCODONE [Concomitant]
     Dates: start: 20041203
  4. METAMUCIL-2 [Concomitant]
     Dates: start: 20041122
  5. PROCRIT [Concomitant]
     Dates: start: 20040715
  6. GLUCOPHAGE [Concomitant]
  7. GLYBURIDE [Concomitant]
  8. ZYRTEC [Concomitant]
     Dates: start: 20040615
  9. PAXIL [Concomitant]
     Dates: start: 20041215
  10. CLONAZEPAM [Concomitant]

REACTIONS (7)
  - ANAEMIA [None]
  - CONTUSION [None]
  - DIZZINESS [None]
  - ECCHYMOSIS [None]
  - FALL [None]
  - LIMB INJURY [None]
  - SOFT TISSUE INJURY [None]
